FAERS Safety Report 9124293 (Version 2)
Quarter: 2013Q1

REPORT INFORMATION
  Report Type: Report from Study
  Country: US (occurrence: US)
  Receive Date: 20130227
  Receipt Date: 20130321
  Transmission Date: 20140127
  Serious: Yes (Death)
  Sender: FDA-Public Use
  Company Number: US-ACTELION-A-US2013-79582

PATIENT
  Age: 3 Year
  Sex: Male

DRUGS (18)
  1. TRACLEER [Suspect]
     Indication: PULMONARY ARTERIAL HYPERTENSION
     Route: 048
  2. HYDROMORPHONE [Concomitant]
  3. KETAMINE [Concomitant]
  4. VERSED [Concomitant]
  5. AMIODARONE [Concomitant]
  6. LASIX [Concomitant]
  7. ASPIRIN [Concomitant]
  8. DIAMOX [Concomitant]
  9. DIURIL [Concomitant]
  10. METOLAZONE [Concomitant]
  11. SPIRONOLACTONE [Concomitant]
  12. SILDENAFIL [Concomitant]
  13. BUDESONIDE [Concomitant]
  14. PULMOZYME [Concomitant]
  15. XOPENEX [Concomitant]
  16. SOLU-MEDROL [Concomitant]
  17. PANTOPRAZOLE [Concomitant]
  18. ZOSYN [Concomitant]

REACTIONS (2)
  - Cardiac failure [Fatal]
  - Heart disease congenital [Fatal]
